FAERS Safety Report 5347358-7 (Version None)
Quarter: 2007Q2

REPORT INFORMATION
  Report Type: 
  Country: None (occurrence: None)
  Receive Date: 20070507
  Receipt Date: 20070110
  Transmission Date: 20071010
  Serious: Yes (Hospitalization, Other)
  Sender: FDA-Public Use
  Company Number: 33506

PATIENT
  Age: 40 Year
  Sex: Female
  Weight: 79.8331 kg

DRUGS (4)
  1. ADRIAMYCIN PFS [Suspect]
     Indication: BREAST CANCER
     Dosage: 100MG/IV PUSH/Q 2WKS
     Dates: start: 20060401, end: 20060501
  2. ZOLOFT [Concomitant]
  3. LORAZEPAM (ACTIVAN) [Concomitant]
  4. HERCEPTIN [Concomitant]

REACTIONS (3)
  - DIZZINESS [None]
  - LOSS OF CONSCIOUSNESS [None]
  - SYNCOPE [None]
